FAERS Safety Report 4999023-3 (Version None)
Quarter: 2006Q2

REPORT INFORMATION
  Report Type: 
  Country: None (occurrence: None)
  Receive Date: 20060509
  Receipt Date: 20060418
  Transmission Date: 20061013
  Serious: Yes (Hospitalization)
  Sender: FDA-Public Use
  Company Number: US200604004393

PATIENT
  Sex: Male
  Weight: 102.9 kg

DRUGS (2)
  1. ZYPREXA [Suspect]
     Dates: start: 20010101, end: 20030101
  2. SERTRALINE [Concomitant]

REACTIONS (5)
  - BLOOD CHOLESTEROL ABNORMAL [None]
  - BLOOD GLUCOSE FLUCTUATION [None]
  - BLOOD TRIGLYCERIDES INCREASED [None]
  - DIABETES MELLITUS [None]
  - LARGE INTESTINAL HAEMORRHAGE [None]
